FAERS Safety Report 23014178 (Version 1)
Quarter: 2023Q4

REPORT INFORMATION
  Report Type: Spontaneous
  Country: US (occurrence: US)
  Receive Date: 20231002
  Receipt Date: 20231002
  Transmission Date: 20240109
  Serious: Yes (Hospitalization, Other)
  Sender: FDA-Public Use
  Company Number: US-TWI PHARMACEUTICAL, INC-2023SCTW000058

PATIENT

DRUGS (1)
  1. BUPROPION HYDROCHLORIDE XL [Suspect]
     Active Substance: BUPROPION HYDROCHLORIDE
     Indication: Product used for unknown indication
     Dosage: UNK
     Route: 048

REACTIONS (8)
  - Cardiogenic shock [Recovering/Resolving]
  - Pupil fixed [Recovering/Resolving]
  - Ventricular tachycardia [Recovering/Resolving]
  - Suicide attempt [Unknown]
  - Overdose [Unknown]
  - Seizure [Recovering/Resolving]
  - Generalised tonic-clonic seizure [Recovering/Resolving]
  - Tachycardia [Recovering/Resolving]
